FAERS Safety Report 9200571 (Version 1)
Quarter: 2013Q1

REPORT INFORMATION
  Report Type: Spontaneous
  Country: US (occurrence: US)
  Receive Date: 20130329
  Receipt Date: 20130329
  Transmission Date: 20140127
  Serious: Yes (Hospitalization)
  Sender: FDA-Public Use
  Company Number: US-PFIZER INC-2004093297

PATIENT
  Age: 74 Year
  Sex: Female

DRUGS (6)
  1. IBUPROFEN [Suspect]
     Indication: PAIN
     Dosage: 600 MG, 3X/DAY
     Dates: start: 200111, end: 200311
  2. PHENYTOIN [Concomitant]
     Dosage: 400 MG, UNK
  3. AMITRIPTYLINE [Concomitant]
     Dosage: 75 MG, UNK
  4. HYDROCHLOROTHIAZIDE [Concomitant]
     Dosage: 12.5 MG, UNK
  5. AVAPRO [Concomitant]
     Dosage: 300 MG, UNK
  6. ACTONEL [Concomitant]
     Dosage: 35 MG, WEEKLY

REACTIONS (2)
  - Cerebral haemorrhage [Recovered/Resolved]
  - Loss of consciousness [Recovered/Resolved]
